FAERS Safety Report 6751505-X (Version None)
Quarter: 2010Q2

REPORT INFORMATION
  Report Type: 
  Country: None (occurrence: None)
  Receive Date: 20100602
  Receipt Date: 20100518
  Transmission Date: 20101027
  Serious: No
  Sender: FDA-Public Use
  Company Number: US-ROXANE LABORATORIES, INC.-2010-RO-00662RO

PATIENT
  Sex: Male

DRUGS (3)
  1. FLUTICASONE PROPIONATE [Suspect]
     Indication: MULTIPLE ALLERGIES
     Route: 055
     Dates: start: 20100426
  2. LOVASTATIN [Concomitant]
     Indication: BLOOD CHOLESTEROL
  3. ALLERGY SHOTS [Concomitant]
     Indication: MULTIPLE ALLERGIES

REACTIONS (1)
  - ANOSMIA [None]
